FAERS Safety Report 24819591 (Version 2)
Quarter: 2025Q2

REPORT INFORMATION
  Report Type: Spontaneous
  Country: US (occurrence: US)
  Receive Date: 20250108
  Receipt Date: 20250428
  Transmission Date: 20250716
  Serious: No
  Sender: PFIZER
  Company Number: US-PFIZER INC-202400032971

PATIENT
  Age: 42 Year
  Sex: Male

DRUGS (1)
  1. LITFULO [Suspect]
     Active Substance: RITLECITINIB TOSYLATE
     Indication: Alopecia areata
     Dosage: 50 MG, 1X/DAY
     Route: 048
     Dates: start: 2024

REACTIONS (5)
  - Drug ineffective [Unknown]
  - Abdominal distension [Unknown]
  - Acne [Unknown]
  - Folliculitis [Unknown]
  - Blood oestrogen decreased [Unknown]
